FAERS Safety Report 4686741-X (Version None)
Quarter: 2005Q2

REPORT INFORMATION
  Report Type: 
  Country: None (occurrence: None)
  Receive Date: 20050608
  Receipt Date: 20050526
  Transmission Date: 20051028
  Serious: Yes (Life-Threatening)
  Sender: FDA-Public Use
  Company Number: 2005075714

PATIENT
  Age: 62 Year
  Sex: Male
  Weight: 70 kg

DRUGS (6)
  1. IRINOTECAN HCL [Suspect]
     Indication: COLORECTAL CANCER
     Dosage: 180 MG/INTERMITTENT,INTRAVENOUS
     Route: 042
     Dates: start: 20041124, end: 20041229
  2. IRINOTECAN HCL [Suspect]
     Indication: HEPATIC CANCER METASTATIC
     Dosage: 180 MG/INTERMITTENT,INTRAVENOUS
     Route: 042
     Dates: start: 20041124, end: 20041229
  3. FLUOROURACIL [Suspect]
     Indication: COLORECTAL CANCER
     Dosage: 900 MG/INTERMITTENT, INTRAVENOUS
     Route: 042
     Dates: start: 20041124, end: 20041229
  4. FLUOROURACIL [Suspect]
     Indication: HEPATIC CANCER METASTATIC
     Dosage: 900 MG/INTERMITTENT, INTRAVENOUS
     Route: 042
     Dates: start: 20041124, end: 20041229
  5. CALCIUM LEVOFOLINATE (CALCIUM LEVOFOLINATE) [Concomitant]
  6. DECADRON [Concomitant]

REACTIONS (1)
  - INTERSTITIAL LUNG DISEASE [None]
